FAERS Safety Report 17500741 (Version 1)
Quarter: 2020Q1

REPORT INFORMATION
  Report Type: Spontaneous
  Country: US (occurrence: US)
  Receive Date: 20200305
  Receipt Date: 20200305
  Transmission Date: 20200409
  Serious: No
  Sender: FDA-Public Use
  Company Number: US-TEVA-2020-US-1192112

PATIENT
  Sex: Male

DRUGS (4)
  1. PROVIGIL [Suspect]
     Active Substance: MODAFINIL
     Route: 065
  2. NUVIGIL [Suspect]
     Active Substance: ARMODAFINIL
     Route: 065
  3. ARMODAFINIL. [Suspect]
     Active Substance: ARMODAFINIL
     Route: 065
  4. MODAFINIL. [Suspect]
     Active Substance: MODAFINIL
     Route: 065

REACTIONS (14)
  - Treatment noncompliance [Unknown]
  - Emotional distress [Unknown]
  - Adulterated product [Unknown]
  - Insomnia [Unknown]
  - Product odour abnormal [Unknown]
  - Somnolence [Unknown]
  - Mental disorder [Unknown]
  - Legal problem [Unknown]
  - Physical assault [Unknown]
  - Central nervous system stimulation [Unknown]
  - Arterial occlusive disease [Unknown]
  - Motor dysfunction [Unknown]
  - Irregular sleep wake rhythm disorder [Unknown]
  - Product availability issue [Unknown]

NARRATIVE: CASE EVENT DATE: 201610
